FAERS Safety Report 24463401 (Version 1)
Quarter: 2024Q4

REPORT INFORMATION
  Report Type: Spontaneous
  Country: US (occurrence: None)
  Receive Date: 20241016
  Receipt Date: 20241016
  Transmission Date: 20250114
  Serious: Yes (Life-Threatening)
  Sender: Public
  Company Number: None

PATIENT
  Age: 8 Year
  Sex: Female
  Weight: 20.8 kg

DRUGS (6)
  1. DUPIXENT [Suspect]
     Active Substance: DUPILUMAB
     Indication: Asthma
     Dates: start: 20240318, end: 20241008
  2. Budesonide-formoterol 160/4.5 [Concomitant]
  3. Fluticasone-Salmeterol 115/21 [Concomitant]
  4. ipratropium 17 mcg inhaler [Concomitant]
  5. MONTELUKAST [Concomitant]
     Active Substance: MONTELUKAST
  6. ALBUTEROL [Concomitant]
     Active Substance: ALBUTEROL

REACTIONS (4)
  - Urticaria [None]
  - Swelling face [None]
  - Cough [None]
  - Dizziness [None]

NARRATIVE: CASE EVENT DATE: 20241003
